FAERS Safety Report 10039020 (Version 4)
Quarter: 2014Q2

REPORT INFORMATION
  Report Type: Spontaneous
  Country: GB (occurrence: GB)
  Receive Date: 20140326
  Receipt Date: 20140428
  Transmission Date: 20141212
  Serious: Yes (Other)
  Sender: FDA-Public Use
  Company Number: GB-BRISTOL-MYERS SQUIBB COMPANY-20551909

PATIENT
  Sex: Female

DRUGS (4)
  1. ELIQUIS [Suspect]
     Indication: HIP ARTHROPLASTY
  2. ELIQUIS [Interacting]
     Indication: KNEE ARTHROPLASTY
  3. METFORMIN HCL [Interacting]
     Indication: DIABETES MELLITUS
  4. IBUPROFEN [Suspect]

REACTIONS (3)
  - Renal failure [Unknown]
  - Creatinine renal clearance abnormal [Unknown]
  - Drug interaction [Unknown]
